FAERS Safety Report 21600921 (Version 1)
Quarter: 2022Q4

REPORT INFORMATION
  Report Type: Report from Study
  Country: US (occurrence: US)
  Receive Date: 20221116
  Receipt Date: 20221116
  Transmission Date: 20230113
  Serious: No
  Sender: FDA-Public Use
  Company Number: US-ABBVIE-4176608

PATIENT
  Age: 40 Year
  Sex: Female
  Weight: 70.306 kg

DRUGS (4)
  1. SKYRIZI [Suspect]
     Active Substance: RISANKIZUMAB-RZAA
     Indication: Psoriasis
     Route: 058
  2. SKYRIZI [Suspect]
     Active Substance: RISANKIZUMAB-RZAA
     Indication: Psoriasis
     Route: 058
     Dates: start: 20220407
  3. SKYRIZI [Suspect]
     Active Substance: RISANKIZUMAB-RZAA
     Indication: Psoriatic arthropathy
  4. ACETAMINOPHEN\DEXTROMETHORPHAN HYDROBROMIDE\GUAIFENESIN\PHENYLEPHRINE [Concomitant]
     Active Substance: ACETAMINOPHEN\DEXTROMETHORPHAN HYDROBROMIDE\GUAIFENESIN\PHENYLEPHRINE HYDROCHLORIDE
     Indication: Product used for unknown indication

REACTIONS (3)
  - COVID-19 [Recovered/Resolved]
  - Nasopharyngitis [Recovered/Resolved]
  - Intentional product misuse [Recovered/Resolved]

NARRATIVE: CASE EVENT DATE: 20220725
